FAERS Safety Report 10755712 (Version 1)
Quarter: 2015Q1

REPORT INFORMATION
  Report Type: Spontaneous
  Country: US (occurrence: None)
  Receive Date: 20150123
  Receipt Date: 20150123
  Transmission Date: 20150721
  Serious: No
  Sender: FDA-Public Use
  Company Number: 2014TUS010302

PATIENT
  Sex: Female

DRUGS (3)
  1. ENTYVIO [Suspect]
     Active Substance: VEDOLIZUMAB
     Indication: CROHN^S DISEASE
     Dosage: 300 MG, FIRST DOSE, 4.8 ML STERILE H2O IN 250 ML NS
     Route: 042
  2. TYLENOL /00020001/ (PARACETAMOL) [Concomitant]
  3. BENADRYL /00000402/ (DIPHENHYDRAMINE HYDROCHLORIDE) [Concomitant]

REACTIONS (2)
  - Pain [None]
  - Fatigue [None]
